FAERS Safety Report 7041240-5 (Version None)
Quarter: 2010Q4

REPORT INFORMATION
  Report Type: 
  Country: None (occurrence: None)
  Receive Date: 20101013
  Receipt Date: 20100928
  Transmission Date: 20110411
  Serious: Yes (Other)
  Sender: FDA-Public Use
  Company Number: PHEH2010US03420

PATIENT
  Sex: Female
  Weight: 78.458 kg

DRUGS (41)
  1. AREDIA [Suspect]
     Indication: BREAST CANCER METASTATIC
     Dosage: 90 MG PER MONTH
     Route: 042
     Dates: start: 20030101
  2. AREDIA [Suspect]
     Indication: METASTASES TO BONE
  3. ZOMETA [Suspect]
     Indication: BREAST CANCER METASTATIC
  4. ARIMIDEX [Concomitant]
     Indication: BREAST CANCER
     Dosage: 1 DF, QD
     Route: 048
  5. DIOVAN [Concomitant]
  6. ADVAIR DISKUS 100/50 [Concomitant]
  7. OXYCODONE HCL [Concomitant]
  8. CLINDAMYCIN [Concomitant]
  9. OXYCONTIN [Concomitant]
     Dosage: 80 MG, PRN
  10. ULTRACET [Concomitant]
     Dosage: 4-8 PER DAY
  11. PAXIL [Concomitant]
  12. EFFEXOR [Concomitant]
  13. BELLERGAL [Concomitant]
     Dosage: 1 DF, QD
     Route: 048
  14. CLONIDINE [Concomitant]
  15. PROZAC [Concomitant]
     Dosage: 1 DF, PRN
  16. VICODIN [Concomitant]
     Dosage: 1 DF, PRN
  17. DURAGESIC-100 [Concomitant]
     Dosage: 2 MG, PRN
  18. NAXIDIN [Concomitant]
  19. ACEPHEN [Concomitant]
     Dosage: 1 DF, QD
  20. FENERGAN [Concomitant]
  21. ANTACID TAB [Concomitant]
  22. PREDNISONE [Concomitant]
     Dosage: 80 MG, QD
  23. LASIX [Concomitant]
  24. MORPHINE [Concomitant]
  25. FENTANYL [Concomitant]
  26. DILAUDID [Concomitant]
  27. SENOKOT                                 /UNK/ [Concomitant]
     Indication: CONSTIPATION
  28. LOTENSIN [Concomitant]
     Route: 048
  29. SOMA [Concomitant]
     Indication: MUSCLE SPASMS
     Dosage: 350 MG, TID
     Route: 048
  30. ADVIL [Concomitant]
  31. ADRIAMYCIN PFS [Concomitant]
  32. CYTOXAN [Concomitant]
  33. CLEOCIN [Concomitant]
  34. ASMANEX TWISTHALER [Concomitant]
  35. PROVENTIL [Concomitant]
  36. PRILOSEC [Concomitant]
     Dosage: UNK
     Route: 048
  37. WELLBUTRIN [Concomitant]
     Dosage: 150 MG, BID
     Route: 048
  38. MAXZIDE [Concomitant]
     Dosage: 25 MG DAILY
  39. SCOPOLAMINE [Concomitant]
     Dosage: 105 MG EVERY 72 HRS
  40. FIBERCON (POLYCARBOPHIL CALCIUM) [Concomitant]
  41. PHENERGAN ^AVENTIS PHARMA^ [Concomitant]
     Dosage: 50 MG, BID

REACTIONS (47)
  - ANHEDONIA [None]
  - ANXIETY [None]
  - ARTHRITIS [None]
  - BACK PAIN [None]
  - BLADDER NEOPLASM [None]
  - BONE DISORDER [None]
  - BONE LESION [None]
  - BONE PAIN [None]
  - BREAST CANCER RECURRENT [None]
  - BREATHING-RELATED SLEEP DISORDER [None]
  - BRUXISM [None]
  - CHEST PAIN [None]
  - DENTAL CARIES [None]
  - DENTAL PLAQUE [None]
  - DEVICE RELATED INFECTION [None]
  - DISABILITY [None]
  - DYSGEUSIA [None]
  - EMPHYSEMA [None]
  - GAIT DISTURBANCE [None]
  - GINGIVAL EROSION [None]
  - GINGIVAL OEDEMA [None]
  - HIATUS HERNIA [None]
  - HOT FLUSH [None]
  - HYDRONEPHROSIS [None]
  - INJURY [None]
  - KNEE ARTHROPLASTY [None]
  - KYPHOSIS [None]
  - METASTASES TO BONE [None]
  - ORAL PAIN [None]
  - OSTEOARTHRITIS [None]
  - OSTEONECROSIS [None]
  - OSTEONECROSIS OF JAW [None]
  - PAIN [None]
  - PELVI-URETERIC OBSTRUCTION [None]
  - PERIODONTAL DISEASE [None]
  - RADIOTHERAPY [None]
  - RENAL CYST [None]
  - RIB FRACTURE [None]
  - ROAD TRAFFIC ACCIDENT [None]
  - SCOLIOSIS [None]
  - SPINAL FRACTURE [None]
  - STAPHYLOCOCCAL INFECTION [None]
  - TOOTH ABSCESS [None]
  - TOOTH DEPOSIT [None]
  - TOOTH EXTRACTION [None]
  - TOOTH FRACTURE [None]
  - WHEELCHAIR USER [None]
